FAERS Safety Report 9849556 (Version 4)
Quarter: 2014Q2

REPORT INFORMATION
  Report Type: Report from Study
  Country: CA (occurrence: CA)
  Receive Date: 20140128
  Receipt Date: 20140424
  Transmission Date: 20141212
  Serious: Yes (Death, Hospitalization, Disabling, Other)
  Sender: FDA-Public Use
  Company Number: CA-ABBVIE-14P-028-1192657-00

PATIENT
  Age: 36 Year
  Sex: Male
  Weight: 96 kg

DRUGS (4)
  1. HUMIRA [Suspect]
     Indication: CROHN^S DISEASE
     Route: 058
     Dates: start: 20130212
  2. HUMIRA [Suspect]
     Route: 058
     Dates: start: 20140105, end: 20140117
  3. NARCOTIC PAINKILLER [Concomitant]
     Indication: PRODUCT USED FOR UNKNOWN INDICATION
  4. CORTICOSTEROIDS [Concomitant]
     Indication: PRODUCT USED FOR UNKNOWN INDICATION

REACTIONS (14)
  - Joint effusion [Fatal]
  - Arthritis bacterial [Fatal]
  - Osteonecrosis [Fatal]
  - Arthritis bacterial [Fatal]
  - Osteonecrosis [Fatal]
  - Oedema peripheral [Fatal]
  - Scar [Fatal]
  - Nuclear magnetic resonance imaging abnormal [Fatal]
  - Oedema peripheral [Fatal]
  - Joint effusion [Fatal]
  - Femur fracture [Fatal]
  - Osteonecrosis [Fatal]
  - Scan gallium abnormal [Fatal]
  - Cardiac arrest [Fatal]
